FAERS Safety Report 20089117 (Version 1)
Quarter: 2021Q4

REPORT INFORMATION
  Report Type: Spontaneous
  Country: US (occurrence: None)
  Receive Date: 20211119
  Receipt Date: 20211119
  Transmission Date: 20220303
  Serious: Yes (Death)
  Sender: FDA-Public Use
  Company Number: US-ROCHE-2895914

PATIENT
  Sex: Female
  Weight: 70.370 kg

DRUGS (6)
  1. ROZLYTREK [Suspect]
     Active Substance: ENTRECTINIB
     Indication: Rectal cancer
     Dosage: 3 CAPSULE
     Route: 048
     Dates: start: 20210717, end: 20211018
  2. METOPROLOL [Concomitant]
     Active Substance: METOPROLOL
     Route: 048
     Dates: start: 20210615
  3. ATORVASTATIN [Concomitant]
     Active Substance: ATORVASTATIN
     Dates: start: 20210615
  4. CITALOPRAM [Concomitant]
     Active Substance: CITALOPRAM HYDROBROMIDE
     Dates: start: 20210615
  5. LISINOPRIL [Concomitant]
     Active Substance: LISINOPRIL
     Dates: start: 20210615
  6. COLACE [Concomitant]
     Active Substance: DOCUSATE SODIUM
     Dates: start: 20210615

REACTIONS (2)
  - Death [Fatal]
  - Off label use [Unknown]
